FAERS Safety Report 8531599-1 (Version None)
Quarter: 2012Q3

REPORT INFORMATION
  Report Type: 
  Country: None (occurrence: None)
  Receive Date: 20120723
  Receipt Date: 20120717
  Transmission Date: 20120928
  Serious: Yes (Hospitalization)
  Sender: FDA-Public Use
  Company Number: PHHY2012CZ029090

PATIENT
  Age: 30 Year
  Sex: Female

DRUGS (2)
  1. GILENYA [Suspect]
     Indication: MULTIPLE SCLEROSIS
     Dosage: 0.5 MG, UNK
     Route: 048
     Dates: start: 20120320, end: 20120403
  2. CONTRACEPTIVES NOS [Concomitant]

REACTIONS (14)
  - MULTIPLE SCLEROSIS RELAPSE [None]
  - CYTOTOXIC OEDEMA [None]
  - BLINDNESS CORTICAL [None]
  - BLOOD FIBRINOGEN DECREASED [None]
  - VISUAL IMPAIRMENT [None]
  - DYSPHONIA [None]
  - DEMYELINATION [None]
  - PARALYSIS [None]
  - APHASIA [None]
  - ORAL HERPES [None]
  - ENCEPHALOPATHY [None]
  - HEMIANOPIA [None]
  - WHITE BLOOD CELL COUNT DECREASED [None]
  - LYMPHOCYTE COUNT DECREASED [None]
